FAERS Safety Report 5941266-6 (Version None)
Quarter: 2008Q4

REPORT INFORMATION
  Report Type: 
  Country: None (occurrence: None)
  Receive Date: 20081103
  Receipt Date: 20081103
  Transmission Date: 20090506
  Serious: Yes (Life-Threatening)
  Sender: FDA-Public Use
  Company Number: None

PATIENT
  Age: 19 Year
  Sex: Female
  Weight: 81.6475 kg

DRUGS (1)
  1. ERRIN [Suspect]
     Indication: CONTRACEPTION
     Dosage: DAILY PO
     Route: 048
     Dates: start: 20080905, end: 20080909

REACTIONS (3)
  - BLOOD GLUCOSE DECREASED [None]
  - DIABETIC COMA [None]
  - ROAD TRAFFIC ACCIDENT [None]
